FAERS Safety Report 8286871-X (Version None)
Quarter: 2012Q2

REPORT INFORMATION
  Report Type: 
  Country: None (occurrence: None)
  Receive Date: 20120416
  Receipt Date: 20120406
  Transmission Date: 20120825
  Serious: Yes (Death, Other)
  Sender: FDA-Public Use
  Company Number: US-VIROPHARMA INCORPORATED-20120406VANCO2823

PATIENT
  Sex: Male

DRUGS (2)
  1. VANCOMYCIN HYDROCHLORIDE [Suspect]
     Indication: CLOSTRIDIAL INFECTION
     Route: 048
     Dates: start: 20120120, end: 20120207
  2. CEFAZOLIN [Concomitant]
     Indication: STAPHYLOCOCCAL INFECTION
     Dosage: UNKNOWN

REACTIONS (3)
  - CARDIAC ARREST [None]
  - ENDOTRACHEAL INTUBATION [None]
  - RENAL FAILURE [None]
